FAERS Safety Report 6165059-2 (Version None)
Quarter: 2009Q3

REPORT INFORMATION
  Report Type: 
  Country: None (occurrence: None)
  Receive Date: 20090421
  Receipt Date: 20090421
  Transmission Date: 20100115
  Serious: No
  Sender: FDA-Public Use
  Company Number: None

PATIENT
  Sex: Female

DRUGS (1)
  1. INDERAL LA [Suspect]
     Indication: PALPITATIONS
     Dosage: 80MG ONCE PO QDLY
     Route: 048
     Dates: start: 20080214, end: 20080314

REACTIONS (1)
  - SOMATOFORM DISORDER [None]
